FAERS Safety Report 5905971-X (Version None)
Quarter: 2008Q3

REPORT INFORMATION
  Report Type: 
  Country: None (occurrence: None)
  Receive Date: 20080930
  Receipt Date: 20080922
  Transmission Date: 20090109
  Serious: Yes (Other)
  Sender: FDA-Public Use
  Company Number: 2008SP016595

PATIENT
  Age: 64 Year
  Sex: Female
  Weight: 77.1115 kg

DRUGS (3)
  1. DRIXORAL [Suspect]
     Indication: RHINORRHOEA
     Dosage: 6 MG; ONCE; PO
     Route: 048
     Dates: start: 20080725, end: 20080725
  2. DRIXORAL [Suspect]
     Indication: UPPER RESPIRATORY TRACT INFECTION
     Dosage: 6 MG; ONCE; PO
     Route: 048
     Dates: start: 20080725, end: 20080725
  3. TYLENOL (CAPLET) [Concomitant]

REACTIONS (4)
  - ARRHYTHMIA [None]
  - HEART RATE IRREGULAR [None]
  - TACHYARRHYTHMIA [None]
  - VENTRICULAR EXTRASYSTOLES [None]
